FAERS Safety Report 18652732 (Version 1)
Quarter: 2020Q4

REPORT INFORMATION
  Report Type: Spontaneous
  Country: US (occurrence: US)
  Receive Date: 20201223
  Receipt Date: 20201223
  Transmission Date: 20210114
  Serious: Yes (Death, Other)
  Sender: FDA-Public Use
  Company Number: US-SUN PHARMACEUTICAL INDUSTRIES LTD-2020R1-271960

PATIENT
  Sex: Male

DRUGS (2)
  1. BACTRIM DS [Suspect]
     Active Substance: SULFAMETHOXAZOLE\TRIMETHOPRIM
     Indication: STAPHYLOCOCCAL INFECTION
     Dosage: UNK (2 TIMES A DAY AND RANGING FROM 20 DAYS TO 4 MONTHS IN A ROW)
     Route: 065
     Dates: start: 201405, end: 201802
  2. BACTRIM DS [Suspect]
     Active Substance: SULFAMETHOXAZOLE\TRIMETHOPRIM
     Indication: CELLULITIS STAPHYLOCOCCAL

REACTIONS (3)
  - Bone marrow disorder [Fatal]
  - Full blood count abnormal [Fatal]
  - Pancytopenia [Fatal]
